FAERS Safety Report 15946176 (Version 1)
Quarter: 2019Q1

REPORT INFORMATION
  Report Type: Spontaneous
  Country: CA (occurrence: CA)
  Receive Date: 20190212
  Receipt Date: 20190212
  Transmission Date: 20190417
  Serious: Yes (Disabling)
  Sender: FDA-Public Use
  Company Number: CA-009507513-1902CAN003466

PATIENT
  Age: 69 Year
  Sex: Male
  Weight: 109 kg

DRUGS (5)
  1. ROSUVASTATIN. [Suspect]
     Active Substance: ROSUVASTATIN
     Indication: BLOOD CHOLESTEROL INCREASED
     Dosage: 10 MILLIGRAM, 1 EVERY 1 DAY(S)
     Route: 048
  2. METFORMIN HYDROCHLORIDE (+) SITAGLIPTIN PHOSPHATE [Concomitant]
     Active Substance: METFORMIN HYDROCHLORIDE\SITAGLIPTIN PHOSPHATE
     Indication: PRODUCT USED FOR UNKNOWN INDICATION
     Route: 065
  3. EZETIMIBE. [Suspect]
     Active Substance: EZETIMIBE
     Indication: BLOOD CHOLESTEROL INCREASED
     Dosage: 10 MILLIGRAM, 1 EVERY 1 DAY(S)
     Route: 048
  4. GLICLAZIDE [Suspect]
     Active Substance: GLICLAZIDE
     Indication: BLOOD CHOLESTEROL INCREASED
     Dosage: 30 MILLIGRAM, 3 EVERY 1 DAY(S)
     Route: 048
  5. RAMIPRIL. [Concomitant]
     Active Substance: RAMIPRIL
     Indication: PRODUCT USED FOR UNKNOWN INDICATION
     Route: 065

REACTIONS (6)
  - Fatigue [Recovered/Resolved]
  - Asthenia [Recovered/Resolved]
  - Movement disorder [Recovered/Resolved]
  - Arthralgia [Recovered/Resolved]
  - Muscular weakness [Recovered/Resolved]
  - Myalgia [Recovered/Resolved]
